FAERS Safety Report 11096046 (Version 1)
Quarter: 2015Q2

REPORT INFORMATION
  Report Type: Spontaneous
  Country: DE (occurrence: None)
  Receive Date: 20150505
  Receipt Date: 20150505
  Transmission Date: 20150821
  Serious: Yes (Other)
  Sender: FDA-Public Use
  Company Number: DE-20150081

PATIENT
  Age: 31 Year
  Sex: Female
  Weight: 55 kg

DRUGS (1)
  1. DOTAREM [Suspect]
     Active Substance: GADOTERATE MEGLUMINE
     Indication: NUCLEAR MAGNETIC RESONANCE IMAGING
     Route: 042
     Dates: start: 20150402, end: 20150402

REACTIONS (3)
  - Urticaria [None]
  - Rash [None]
  - Swelling face [None]

NARRATIVE: CASE EVENT DATE: 20150402
